FAERS Safety Report 8220756-X (Version None)
Quarter: 2012Q1

REPORT INFORMATION
  Report Type: 
  Country: None (occurrence: None)
  Receive Date: 20120320
  Receipt Date: 20120312
  Transmission Date: 20120608
  Serious: No
  Sender: FDA-Public Use
  Company Number: US-BAYER-2012-026189

PATIENT
  Age: 11 Year
  Sex: Female
  Weight: 35.374 kg

DRUGS (2)
  1. IBUPROFEN [Concomitant]
     Indication: INFLUENZA LIKE ILLNESS
  2. ALEVE (CAPLET) [Suspect]
     Dosage: 3 TABS USED ONLY ONE TIME
     Route: 048
     Dates: start: 20120313

REACTIONS (1)
  - NO ADVERSE EVENT [None]
